FAERS Safety Report 17795963 (Version 1)
Quarter: 2020Q2

REPORT INFORMATION
  Report Type: Spontaneous
  Country: US (occurrence: US)
  Receive Date: 20200516
  Receipt Date: 20200516
  Transmission Date: 20200714
  Serious: Yes (Other)
  Sender: FDA-Public Use
  Company Number: US-SYNEX-T202002150

PATIENT
  Sex: Female

DRUGS (1)
  1. INOMAX [Suspect]
     Active Substance: NITRIC OXIDE
     Indication: CONGENITAL DIAPHRAGMATIC HERNIA
     Dosage: UNK (INHALATION)
     Route: 055

REACTIONS (2)
  - Methaemoglobinaemia [Recovering/Resolving]
  - Lactic acidosis [Recovering/Resolving]
